FAERS Safety Report 6371220-4 (Version None)
Quarter: 2009Q3

REPORT INFORMATION
  Report Type: 
  Country: None (occurrence: None)
  Receive Date: 20090923
  Receipt Date: 20070510
  Transmission Date: 20100115
  Serious: Yes (Hospitalization, Other)
  Sender: FDA-Public Use
  Company Number: US-ASTRAZENECA-2006UW27855

PATIENT
  Age: 36 Year
  Sex: Female
  Weight: 93.9 kg

DRUGS (23)
  1. SEROQUEL [Suspect]
     Dosage: 25 - 600 MG DAILY
     Route: 048
     Dates: start: 20001130
  2. ABILIFY [Concomitant]
  3. CLOZARIL [Concomitant]
  4. HALDOL [Concomitant]
  5. RISPERDAL [Concomitant]
  6. EFFEXOR [Concomitant]
  7. ALPRAZOLAM [Concomitant]
     Dosage: 2 - 3 MG DAILY
     Route: 048
  8. KLONOPIN [Concomitant]
     Dosage: 1 - 10 MG DAILY
     Route: 048
  9. ZANTAC [Concomitant]
  10. GEMFIBROZIL [Concomitant]
     Route: 048
  11. PEPCID [Concomitant]
     Route: 048
  12. COLACE [Concomitant]
     Route: 048
  13. FLUOXETINE [Concomitant]
     Dosage: 10 - 20 MG DAILY
     Route: 048
  14. TEMAZEPAM [Concomitant]
     Route: 048
  15. ELAVIL [Concomitant]
     Route: 048
  16. GABITRIL [Concomitant]
  17. ATIVAN [Concomitant]
  18. TRAZODONE [Concomitant]
  19. LEVOTHROID [Concomitant]
     Dosage: 0.05 - 0.75 MG DAILY
     Route: 048
  20. ZOLOFT [Concomitant]
     Route: 048
  21. IMITREX [Concomitant]
     Dosage: 25 - 50 MG DAILY
     Route: 048
  22. QUININE SULFATE [Concomitant]
  23. QUININE SULFATE [Concomitant]

REACTIONS (2)
  - DIABETES MELLITUS [None]
  - PANCREATITIS [None]
